FAERS Safety Report 10131659 (Version 1)
Quarter: 2014Q2

REPORT INFORMATION
  Report Type: Spontaneous
  Country: US (occurrence: US)
  Receive Date: 20140428
  Receipt Date: 20140428
  Transmission Date: 20141212
  Serious: Yes (Other)
  Sender: FDA-Public Use
  Company Number: US-PFIZER INC-2014115088

PATIENT
  Age: 76 Year
  Sex: 0

DRUGS (2)
  1. EFFEXOR [Suspect]
     Dosage: 75 MG, DAILY
  2. EFFEXOR [Suspect]
     Dosage: 150 MG, DAILY

REACTIONS (1)
  - Depression [Unknown]
